FAERS Safety Report 23828965 (Version 2)
Quarter: 2024Q2

REPORT INFORMATION
  Report Type: Spontaneous
  Country: CA (occurrence: CA)
  Receive Date: 20240508
  Receipt Date: 20240521
  Transmission Date: 20240716
  Serious: Yes (Other)
  Sender: FDA-Public Use
  Company Number: CA-CELLTRION INC.-2023CA019902

PATIENT

DRUGS (19)
  1. YUFLYMA [Suspect]
     Active Substance: ADALIMUMAB-AATY
     Indication: Rheumatoid arthritis
     Dosage: 40 MG, Q2WEEKS
     Route: 058
     Dates: start: 20230918
  2. YUFLYMA [Suspect]
     Active Substance: ADALIMUMAB-AATY
     Dosage: 40 MG, Q2WEEKS
     Route: 058
     Dates: start: 20231002
  3. YUFLYMA [Suspect]
     Active Substance: ADALIMUMAB-AATY
     Dosage: 40 MG, Q2WEEKS
     Route: 058
     Dates: start: 20231009
  4. YUFLYMA [Suspect]
     Active Substance: ADALIMUMAB-AATY
     Dosage: 40 MG, Q2WEEKS
     Route: 058
     Dates: start: 20240401
  5. LEFLUNOMIDE [Suspect]
     Active Substance: LEFLUNOMIDE
     Indication: Product used for unknown indication
     Dosage: UNK
     Dates: end: 20231006
  6. LEFLUNOMIDE [Suspect]
     Active Substance: LEFLUNOMIDE
     Indication: Product used for unknown indication
  7. METHOTREXATE [Concomitant]
     Active Substance: METHOTREXATE
     Dosage: 20 MG, WEEKLY
     Route: 065
  8. METHOTREXATE [Concomitant]
     Active Substance: METHOTREXATE
     Dosage: 20 MG, WEEKLY
     Route: 048
     Dates: end: 202310
  9. METHOTREXATE [Concomitant]
     Active Substance: METHOTREXATE
     Dosage: 20 MILLIGRAM, 1 EVERY 1 WEEKS
     Route: 065
  10. PROGESTERONE [Concomitant]
     Active Substance: PROGESTERONE
     Dosage: 400 MG, WEEKLY
  11. PROGESTERONE [Concomitant]
     Active Substance: PROGESTERONE
     Dosage: 400 MG, 1 EVERY 1 WEEKS
  12. ESTRADIOL [Concomitant]
     Active Substance: ESTRADIOL
     Dosage: 4 MG, WEEKLY
  13. ESTRADIOL [Concomitant]
     Active Substance: ESTRADIOL
     Dosage: 4 MILLIGRAM, 1 EVERY 1 WEEKS
  14. FOLIC ACID [Concomitant]
     Active Substance: FOLIC ACID
     Dosage: 6 DAYS A WEEK
  15. FOLIC ACID [Concomitant]
     Active Substance: FOLIC ACID
  16. HYDROXYCHLOROQUINE [Concomitant]
     Active Substance: HYDROXYCHLOROQUINE
     Dosage: 1800 MG, WEEKLY
  17. VITAMIN D NOS [Concomitant]
     Active Substance: CHOLECALCIFEROL\ERGOCALCIFEROL
  18. CYANOCOBALAMIN [Concomitant]
     Active Substance: CYANOCOBALAMIN
  19. CYANOCOBALAMIN [Concomitant]
     Active Substance: CYANOCOBALAMIN

REACTIONS (6)
  - Decreased immune responsiveness [Not Recovered/Not Resolved]
  - COVID-19 [Not Recovered/Not Resolved]
  - Intentional dose omission [Not Recovered/Not Resolved]
  - Inflammation [Unknown]
  - Drug ineffective [Unknown]
  - Therapy cessation [Unknown]

NARRATIVE: CASE EVENT DATE: 20230918
